FAERS Safety Report 5149433-9 (Version None)
Quarter: 2006Q4

REPORT INFORMATION
  Report Type: 
  Country: None (occurrence: None)
  Receive Date: 20061113
  Receipt Date: 20060112
  Transmission Date: 20070319
  Serious: Yes (Hospitalization)
  Sender: FDA-Public Use
  Company Number: 432266

PATIENT
  Age: 63 Year
  Sex: Female

DRUGS (7)
  1. COREG [Suspect]
     Indication: HYPERTENSION
     Dosage: 25MG TWICE PER DAY
     Route: 048
  2. DIOVAN HCT [Concomitant]
  3. NORVASC [Concomitant]
  4. ZETIA [Concomitant]
  5. ZOCOR [Concomitant]
  6. PLAVIX [Concomitant]
  7. LEVOXYL [Concomitant]

REACTIONS (1)
  - DYSPNOEA [None]
